FAERS Safety Report 5320390-5 (Version None)
Quarter: 2007Q1

REPORT INFORMATION
  Report Type: 
  Country: None (occurrence: None)
  Receive Date: 20070220
  Receipt Date: 20061216
  Transmission Date: 20070707
  Serious: No
  Sender: FDA-Public Use
  Company Number: WAES 0612USA02890

PATIENT
  Age: 68 Year
  Sex: Male

DRUGS (1)
  1. JANUVIA [Suspect]
     Indication: DIABETES MELLITUS NON-INSULIN-DEPENDENT
     Dosage: 100 MG/PO
     Route: 048
     Dates: start: 20061202

REACTIONS (4)
  - DIPLOPIA [None]
  - EYELID PTOSIS [None]
  - HEADACHE [None]
  - NASAL CONGESTION [None]
